FAERS Safety Report 8489761-2 (Version None)
Quarter: 2012Q3

REPORT INFORMATION
  Report Type: 
  Country: None (occurrence: None)
  Receive Date: 20120705
  Receipt Date: 20120626
  Transmission Date: 20120928
  Serious: Yes (Other)
  Sender: FDA-Public Use
  Company Number: US-ASTRAZENECA-2012SE42903

PATIENT
  Age: 83 Year
  Sex: Male

DRUGS (2)
  1. NEXIUM [Suspect]
     Route: 048
  2. LIPITOR [Concomitant]

REACTIONS (6)
  - POLYARTHRITIS [None]
  - MALAISE [None]
  - NEOPLASM MALIGNANT [None]
  - STRESS [None]
  - CEREBROVASCULAR ACCIDENT [None]
  - PAIN [None]
